FAERS Safety Report 23697049 (Version 3)
Quarter: 2024Q2

REPORT INFORMATION
  Report Type: Spontaneous
  Country: CH (occurrence: CH)
  Receive Date: 20240402
  Receipt Date: 20240422
  Transmission Date: 20240716
  Serious: Yes (Other)
  Sender: FDA-Public Use
  Company Number: CH-002147023-NVSC2023CH260927

PATIENT
  Sex: Male

DRUGS (8)
  1. LUTATHERA [Suspect]
     Active Substance: LUTETIUM OXODOTREOTIDE LU-177
     Indication: Neuroendocrine tumour of the rectum
     Dosage: 7.4 GBQ Q8W (FIRST DOSE)
     Route: 042
     Dates: start: 20200120
  2. LUTATHERA [Suspect]
     Active Substance: LUTETIUM OXODOTREOTIDE LU-177
     Dosage: 7.4 GBQ Q8W (SECOND DOSE)
     Route: 042
     Dates: start: 20200511
  3. LUTATHERA [Suspect]
     Active Substance: LUTETIUM OXODOTREOTIDE LU-177
     Dosage: 7.4 GBQ Q8W (THIRD DOSE)
     Route: 042
     Dates: start: 20200707, end: 20200908
  4. LUTATHERA [Suspect]
     Active Substance: LUTETIUM OXODOTREOTIDE LU-177
     Dosage: UNK (FOURTH DOSE)
     Route: 065
  5. LUTATHERA [Suspect]
     Active Substance: LUTETIUM OXODOTREOTIDE LU-177
     Dosage: 7.4 GBQ Q8W  (FIFTH DOSE)
     Route: 042
     Dates: start: 20231010
  6. LUTATHERA [Suspect]
     Active Substance: LUTETIUM OXODOTREOTIDE LU-177
     Dosage: 7.4 GBQ Q8W  (SIXTH DOSE)
     Route: 042
     Dates: start: 20231204
  7. LUTATHERA [Suspect]
     Active Substance: LUTETIUM OXODOTREOTIDE LU-177
     Dosage: UNK (SEVENTH DOSE), Q8W
     Route: 042
     Dates: start: 20240123
  8. LUTATHERA [Suspect]
     Active Substance: LUTETIUM OXODOTREOTIDE LU-177
     Dosage: UNK (EIGHTH DOSE), Q8W
     Route: 042
     Dates: start: 20240321, end: 20240321

REACTIONS (5)
  - Malignant neoplasm progression [Unknown]
  - Neuroendocrine tumour of the rectum [Unknown]
  - Thrombocytopenia [Recovering/Resolving]
  - Pancytopenia [Not Recovered/Not Resolved]
  - Off label use [Unknown]

NARRATIVE: CASE EVENT DATE: 20230807
